FAERS Safety Report 6450124-2 (Version None)
Quarter: 2009Q4

REPORT INFORMATION
  Report Type: 
  Country: None (occurrence: None)
  Receive Date: 20091120
  Receipt Date: 20091120
  Transmission Date: 20100525
  Serious: Yes (Hospitalization)
  Sender: FDA-Public Use
  Company Number: None

PATIENT
  Sex: Male
  Weight: 79.38 kg

DRUGS (4)
  1. MERCAPTOPURINE [Suspect]
     Dosage: 9000 MG
  2. METHOTREXATE [Suspect]
     Dosage: 270 MG
  3. VINCRISTINE SULFATE [Suspect]
  4. DEXAMETHASONE TAB [Suspect]
     Dosage: 180 MG

REACTIONS (20)
  - ABDOMINAL PAIN [None]
  - ALANINE AMINOTRANSFERASE INCREASED [None]
  - ASPARTATE AMINOTRANSFERASE INCREASED [None]
  - BLOOD BILIRUBIN INCREASED [None]
  - CHEST PAIN [None]
  - CHILLS [None]
  - CULTURE WOUND POSITIVE [None]
  - DIARRHOEA [None]
  - DYSPNOEA [None]
  - ERYTHEMA [None]
  - ESCHERICHIA INFECTION [None]
  - FALL [None]
  - HEAD INJURY [None]
  - JOINT SWELLING [None]
  - JOINT WARMTH [None]
  - LOSS OF CONSCIOUSNESS [None]
  - NECK PAIN [None]
  - PNEUMONIA [None]
  - PYREXIA [None]
  - SYNCOPE [None]
